FAERS Safety Report 10477451 (Version 1)
Quarter: 2014Q3

REPORT INFORMATION
  Report Type: Spontaneous
  Country: US (occurrence: US)
  Receive Date: 20140926
  Receipt Date: 20140926
  Transmission Date: 20150326
  Serious: Yes (Other)
  Sender: FDA-Public Use
  Company Number: US-BAYER-2014-142781

PATIENT
  Age: 44 Year
  Sex: Female
  Weight: 79 kg

DRUGS (9)
  1. LASIX [Concomitant]
     Active Substance: FUROSEMIDE
     Dosage: 40 MG, QD
     Route: 048
  2. CYMBALTA [Concomitant]
     Active Substance: DULOXETINE HYDROCHLORIDE
     Dosage: 30 MG, QD
     Route: 048
  3. CYMBALTA [Concomitant]
     Active Substance: DULOXETINE HYDROCHLORIDE
     Dosage: 60 MG, QD
     Route: 048
  4. SOMA [Concomitant]
     Active Substance: CARISOPRODOL
     Dosage: 350 MG, FOUR TIMES DAILY
     Route: 048
  5. POTASSIUM CHLORIDE. [Concomitant]
     Active Substance: POTASSIUM CHLORIDE
     Dosage: 20 MEQ, QD
     Route: 048
  6. ALEVE [Suspect]
     Active Substance: NAPROXEN SODIUM
     Indication: FIBROMYALGIA
     Dosage: UNK
     Route: 048
     Dates: start: 2014
  7. LYRICA [Concomitant]
     Active Substance: PREGABALIN
     Dosage: 100 MG, TID
     Route: 048
  8. PERCOCET [Concomitant]
     Active Substance: ACETAMINOPHEN\OXYCODONE HYDROCHLORIDE
     Dosage: 1 DF, EVERY 6 HOURS
  9. FENTANYL. [Concomitant]
     Active Substance: FENTANYL
     Dosage: 75 ?G, PATCH
     Route: 062

REACTIONS (20)
  - Gastrooesophageal reflux disease [Unknown]
  - Pollakiuria [None]
  - Cardiac failure congestive [None]
  - Paraesthesia [Unknown]
  - Back pain [None]
  - Musculoskeletal stiffness [Unknown]
  - Micturition urgency [None]
  - Headache [None]
  - Asthenia [None]
  - Headache [None]
  - Oral pain [Unknown]
  - Neck pain [Unknown]
  - Muscular weakness [None]
  - Musculoskeletal pain [Unknown]
  - Intentional product misuse [Unknown]
  - Hypoaesthesia [Unknown]
  - Arthralgia [Unknown]
  - Costochondritis [Unknown]
  - Musculoskeletal chest pain [Unknown]
  - Depression [Unknown]

NARRATIVE: CASE EVENT DATE: 2014
